FAERS Safety Report 9964363 (Version 3)
Quarter: 2014Q2

REPORT INFORMATION
  Report Type: Spontaneous
  Country: IT (occurrence: IT)
  Receive Date: 20140305
  Receipt Date: 20140409
  Transmission Date: 20141212
  Serious: Yes (Other)
  Sender: FDA-Public Use
  Company Number: IT-PFIZER INC-2014062745

PATIENT
  Age: 20 Year
  Sex: Female

DRUGS (4)
  1. XANAX [Suspect]
     Indication: PERSONALITY DISORDER
     Dosage: 20 GTT, TOTAL
     Route: 048
     Dates: start: 20140223, end: 20140223
  2. SEROQUEL [Suspect]
     Indication: PERSONALITY DISORDER
     Dosage: 900 MG, TOTAL
     Route: 048
     Dates: start: 20140223, end: 20140223
  3. CITALOPRAM [Concomitant]
     Dosage: 30 MG, UNK
  4. DIAZEPAM [Concomitant]
     Dosage: 20 GTT, UNK

REACTIONS (2)
  - Toxicity to various agents [Recovering/Resolving]
  - Drug abuse [Recovering/Resolving]
